FAERS Safety Report 23305767 (Version 3)
Quarter: 2024Q1

REPORT INFORMATION
  Report Type: Spontaneous
  Country: DE (occurrence: DE)
  Receive Date: 20231218
  Receipt Date: 20240123
  Transmission Date: 20240410
  Serious: Yes (Other)
  Sender: FDA-Public Use
  Company Number: DE-KRKA-DE2023K17541LIT

PATIENT
  Age: 62 Year
  Sex: Male

DRUGS (1)
  1. LENALIDOMIDE [Suspect]
     Active Substance: LENALIDOMIDE
     Indication: Plasma cell myeloma
     Dosage: UNK
     Route: 065

REACTIONS (10)
  - Rhinovirus infection [Recovered/Resolved]
  - Infection in an immunocompromised host [Recovered/Resolved]
  - Nasopharyngitis [Unknown]
  - Heart rate increased [Unknown]
  - Pyrexia [Unknown]
  - Respiratory tract infection [Unknown]
  - Blood immunoglobulin G decreased [Unknown]
  - Illness [Unknown]
  - Oropharyngeal pain [Unknown]
  - C-reactive protein increased [Unknown]
